FAERS Safety Report 24789292 (Version 1)
Quarter: 2024Q4

REPORT INFORMATION
  Report Type: Spontaneous
  Country: CH (occurrence: CH)
  Receive Date: 20241230
  Receipt Date: 20241230
  Transmission Date: 20250115
  Serious: Yes (Other)
  Sender: MYLAN
  Company Number: None

PATIENT
  Age: 60 Year
  Sex: Female
  Weight: 43.7 kg

DRUGS (20)
  1. PANTOPRAZOLE [Suspect]
     Active Substance: PANTOPRAZOLE
     Indication: Product used for unknown indication
     Dosage: 20 MILLIGRAM, QD (AT MIDDAY)
     Route: 065
  2. LYRICA [Suspect]
     Active Substance: PREGABALIN
     Indication: Product used for unknown indication
     Dosage: 25 MILLIGRAM, BID (25 MG: 1-1-2-0)
     Route: 065
     Dates: start: 20241114
  3. LYRICA [Suspect]
     Active Substance: PREGABALIN
     Dosage: 50 MILLIGRAM, QD (25 MG: 1-1-2-0)
     Route: 065
     Dates: start: 20241114
  4. SODIUM PICOSULFATE [Suspect]
     Active Substance: SODIUM PICOSULFATE
     Indication: Product used for unknown indication
     Dosage: 10 DOSAGE FORM, QD  (10 DROPS 1 X DAILY, ALSO REPORTED AS 30 DROPS 6 X DAILY)
     Route: 065
     Dates: start: 20241108
  5. SODIUM PICOSULFATE [Suspect]
     Active Substance: SODIUM PICOSULFATE
     Dosage: 30 DOSAGE FORM, Q4H  (10 DROPS 1 X DAILY, ALSO REPORTED AS 30 DROPS 6 X DAILY)
     Route: 065
     Dates: start: 20241108
  6. SEROQUEL XR [Suspect]
     Active Substance: QUETIAPINE FUMARATE
     Indication: Product used for unknown indication
     Dosage: 150 MILLIGRAM, QD (150 MG 1 X DAILY AT 16:00)
     Route: 065
     Dates: start: 20241011
  7. CLOTHIAPINE [Concomitant]
     Active Substance: CLOTHIAPINE
     Dosage: 30 MILLIGRAM, QD
     Route: 065
     Dates: start: 20241030
  8. CLOTHIAPINE [Concomitant]
     Active Substance: CLOTHIAPINE
     Dosage: 10 MILLIGRAM, PRN (MAX. 2 X 10 MG/DAY)
     Route: 065
     Dates: start: 20241030
  9. VITAMINS [Concomitant]
     Active Substance: VITAMINS
     Dosage: 1 DOSAGE FORM, QD (1 TABLET 1 X DAILY IN THE MORNING)
     Route: 065
     Dates: start: 20241008
  10. Calcimagon D3 Forte [Concomitant]
     Dosage: 1 DOSAGE FORM, QD (1 TABLET 1 X DAILY AT MIDDAY)
     Route: 065
     Dates: start: 20241008
  11. CREON [Concomitant]
     Active Substance: PANCRELIPASE AMYLASE\PANCRELIPASE LIPASE\PANCRELIPASE PROTEASE
     Dosage: 1 DOSAGE FORM, AM (1 TABLET 1 X DAILY IN THE MORNING)
     Route: 065
     Dates: start: 20241008
  12. ANORO ELLIPTA [Concomitant]
     Active Substance: UMECLIDINIUM BROMIDE\VILANTEROL TRIFENATATE
     Dosage: 1 DOSAGE FORM, QD (1 INHALATION 1 X DAILY IN THE MORNING, UMECLIDINIUM + VILANTEROL 2 X DAILY)
     Route: 055
     Dates: start: 20241008
  13. DAFALGAN [Concomitant]
     Active Substance: ACETAMINOPHEN
     Dosage: 500 MILLIGRAM, PRN (MAX. 500 MG 4 X DAILY)
     Route: 065
     Dates: start: 20241008
  14. Novalgin [Concomitant]
     Dosage: 500 MILLIGRAM, PRN (AS REQUIRED: 500 MG 1 X DAILY, ALSO REPORTED AS 3 TABLETS DAILY EVERY DAY)
     Route: 065
     Dates: start: 20241119
  15. ZOLPIDEM TARTRATE [Concomitant]
     Active Substance: ZOLPIDEM TARTRATE
     Dosage: 10 MILLIGRAM, PRN (MAX. 10 MG 1 X DAILY)
     Route: 065
     Dates: start: 20241008
  16. XANAX [Concomitant]
     Active Substance: ALPRAZOLAM
     Dosage: 1 MILLIGRAM, PRN (MAX. 1 MG 6 X DAILY)
     Route: 065
     Dates: start: 20241008
  17. FREKA-CLYSS [Concomitant]
     Dosage: 1 DOSAGE FORM, PRN (1 X EVERY 2-3 DAYS
     Route: 065
     Dates: start: 20241023
  18. MOTILIUM [Concomitant]
     Active Substance: DOMPERIDONE
     Dosage: 10 MILLIGRAM, PRN (MAX 10 MG
     Route: 065
     Dates: start: 20241108
  19. MOTILIUM [Concomitant]
     Active Substance: DOMPERIDONE
     Dosage: 8 DOSAGE FORM, QD (ALSO REPORTED AS 8 TABLETS DAILY)
     Route: 065
     Dates: start: 20241108
  20. MEBEVERINE [Concomitant]
     Active Substance: MEBEVERINE
     Dosage: UNK, PRN (MAX. 2-3 X DAILY)
     Route: 065

REACTIONS (2)
  - Inappropriate antidiuretic hormone secretion [Not Recovered/Not Resolved]
  - Hyponatraemia [Not Recovered/Not Resolved]

NARRATIVE: CASE EVENT DATE: 20241201
